FAERS Safety Report 7548668-5 (Version None)
Quarter: 2011Q2

REPORT INFORMATION
  Report Type: 
  Country: None (occurrence: None)
  Receive Date: 20110524
  Receipt Date: 20110203
  Transmission Date: 20111010
  Serious: No
  Sender: FDA-Public Use
  Company Number: 026872

PATIENT
  Sex: Male

DRUGS (1)
  1. CIMZIA [Suspect]
     Indication: CROHN'S DISEASE
     Dosage: (SUBCUTANEOUS), (200 MG 1X/14 DAYS SUBCUTANEOUS)
     Route: 058
     Dates: start: 20100701

REACTIONS (4)
  - INJECTION SITE PAIN [None]
  - INJECTION SITE SWELLING [None]
  - DRY SKIN [None]
  - ARTHRALGIA [None]
